FAERS Safety Report 9784031 (Version 1)
Quarter: 2013Q4

REPORT INFORMATION
  Report Type: Spontaneous
  Country: US (occurrence: US)
  Receive Date: 20131226
  Receipt Date: 20131226
  Transmission Date: 20140711
  Serious: No
  Sender: FDA-Public Use
  Company Number: US-PFIZER INC-2013362951

PATIENT
  Age: 52 Year
  Sex: Male

DRUGS (4)
  1. REVATIO [Suspect]
     Dosage: UNK
  2. LETAIRIS [Suspect]
     Indication: PULMONARY HYPERTENSION
     Dosage: 5 MG, 1X/DAY
     Dates: start: 20131025
  3. COUMADIN [Suspect]
     Dosage: UNK
  4. WARFARIN [Concomitant]
     Dosage: UNK

REACTIONS (1)
  - International normalised ratio increased [Unknown]
